FAERS Safety Report 8909437 (Version 1)
Quarter: 2012Q4

REPORT INFORMATION
  Report Type: 
  Country: US (occurrence: US)
  Receive Date: 20121114
  Receipt Date: 20121114
  Transmission Date: 20130627
  Serious: Yes (Other)
  Sender: FDA-Public Use
  Company Number: US-MYLANLABS-2012S1022982

PATIENT
  Age: 60 Year
  Sex: Female

DRUGS (6)
  1. FENTANYL TRANSDERMAL SYSTEM [Suspect]
     Indication: BACK PAIN
     Dosage: Changes q. 72 hours.
     Route: 062
     Dates: start: 2011
  2. FENTANYL TRANSDERMAL SYSTEM [Suspect]
     Indication: PAIN
     Dosage: Changes q. 72 hours.
     Route: 062
     Dates: start: 2011
  3. INSULIN [Concomitant]
     Indication: DIABETES MELLITUS
  4. VERAPAMIL [Concomitant]
     Indication: BLOOD PRESSURE INCREASED
  5. ULTRACET [Concomitant]
     Indication: PAIN
  6. HYDROCODONE [Concomitant]
     Indication: PAIN

REACTIONS (5)
  - Bronchitis [Not Recovered/Not Resolved]
  - Chest pain [Recovered/Resolved]
  - Drug effect decreased [Not Recovered/Not Resolved]
  - Back pain [Not Recovered/Not Resolved]
  - Pain [Not Recovered/Not Resolved]
